FAERS Safety Report 8546375-3 (Version None)
Quarter: 2012Q3

REPORT INFORMATION
  Report Type: 
  Country: None (occurrence: None)
  Receive Date: 20120727
  Receipt Date: 20111220
  Transmission Date: 20120928
  Serious: No
  Sender: FDA-Public Use
  Company Number: US-ASTRAZENECA-2011SE77537

PATIENT
  Age: 56 Year
  Sex: Female
  Weight: 81.6 kg

DRUGS (1)
  1. SEROQUEL [Suspect]
     Indication: BIPOLAR DISORDER
     Route: 048

REACTIONS (5)
  - DRUG INEFFECTIVE [None]
  - ALOPECIA [None]
  - FEELING ABNORMAL [None]
  - WEIGHT INCREASED [None]
  - FATIGUE [None]
